FAERS Safety Report 25910714 (Version 3)
Quarter: 2025Q4

REPORT INFORMATION
  Report Type: Spontaneous
  Country: JP (occurrence: JP)
  Receive Date: 20251013
  Receipt Date: 20251222
  Transmission Date: 20260119
  Serious: Yes (Life-Threatening, Hospitalization)
  Sender: AMGEN
  Company Number: JP-KISSEI-TV20251027_P_1

PATIENT
  Age: 80 Year
  Sex: Female
  Weight: 34.4 kg

DRUGS (13)
  1. TAVNEOS [Suspect]
     Active Substance: AVACOPAN
     Indication: Microscopic polyangiitis
     Dosage: 10 MG, BID
     Route: 048
     Dates: start: 20250710, end: 20250808
  2. PREDNISOLONE [Concomitant]
     Active Substance: PREDNISOLONE
     Dosage: 1 MG, QD
     Route: 048
  3. MOLIDUSTAT SODIUM [Concomitant]
     Active Substance: MOLIDUSTAT SODIUM
     Dosage: 25 MG, QD
     Route: 048
  4. FERROUS SULFATE [Concomitant]
     Active Substance: FERROUS SULFATE
     Dosage: 105 MG, QD
     Route: 048
  5. CILNIDIPINE [Concomitant]
     Active Substance: CILNIDIPINE
     Dosage: 5 MG, QD
     Route: 048
  6. ALFACALCIDOL [Concomitant]
     Active Substance: ALFACALCIDOL
     Dosage: 0.25 MUG, QD
     Route: 048
  7. ZOLPIDEM TARTRATE [Concomitant]
     Active Substance: ZOLPIDEM TARTRATE
     Dosage: 5 MG, QD
     Route: 048
  8. NEXIUM [Concomitant]
     Active Substance: ESOMEPRAZOLE MAGNESIUM
     Dosage: 10 MG, QD
     Route: 048
  9. JANUVIA [Concomitant]
     Active Substance: SITAGLIPTIN PHOSPHATE
     Dosage: 12.5 MG, QD
     Route: 048
  10. ATORVASTATIN [Concomitant]
     Active Substance: ATORVASTATIN
     Dosage: 10 MG, QD
     Route: 048
  11. FEBUXOSTAT [Concomitant]
     Active Substance: FEBUXOSTAT
     Dosage: 10 MG, QD
     Route: 048
  12. VOGLIBOSE [Concomitant]
     Active Substance: VOGLIBOSE
     Dosage: 0.9 MG, QD
     Route: 048
  13. DIETARY SUPPLEMENT\PROBIOTICS [Concomitant]
     Active Substance: DIETARY SUPPLEMENT\PROBIOTICS NOS
     Dosage: 3 DF, QD
     Route: 048

REACTIONS (6)
  - Hepatic function abnormal [Recovered/Resolved]
  - Malaise [Unknown]
  - Pruritus [Unknown]
  - Decreased appetite [Unknown]
  - Body temperature increased [Unknown]
  - Underdose [Unknown]

NARRATIVE: CASE EVENT DATE: 20250710
